FAERS Safety Report 4507416-3 (Version None)
Quarter: 2004Q4

REPORT INFORMATION
  Report Type: 
  Country: None (occurrence: None)
  Receive Date: 20041118
  Receipt Date: 20041105
  Transmission Date: 20050328
  Serious: Yes (Hospitalization, Other)
  Sender: FDA-Public Use
  Company Number: 2004090170

PATIENT
  Age: 87 Year
  Sex: Male

DRUGS (7)
  1. BEXTRA [Suspect]
     Indication: ARTHRALGIA
     Dosage: 40 MG (20 MG, 2 IN 1 D), ORAL
     Route: 048
     Dates: start: 20040701
  2. ATENOLOL [Concomitant]
  3. WARFARIN SODIUM [Concomitant]
  4. FINASTERIDE [Concomitant]
  5. FUROSEMIDE [Concomitant]
  6. LISINOPRIL [Concomitant]
  7. ACETAMINOPHEN [Concomitant]

REACTIONS (3)
  - FALL [None]
  - JOINT INJURY [None]
  - RIB FRACTURE [None]
